FAERS Safety Report 24064268 (Version 1)
Quarter: 2024Q3

REPORT INFORMATION
  Report Type: Spontaneous
  Country: CN (occurrence: CN)
  Receive Date: 20240709
  Receipt Date: 20240709
  Transmission Date: 20241017
  Serious: Yes (Hospitalization)
  Sender: MYLAN
  Company Number: CN-MYLANLABS-2024M1062719

PATIENT
  Age: 7 Decade
  Sex: Male

DRUGS (4)
  1. ATORVASTATIN [Suspect]
     Active Substance: ATORVASTATIN
     Indication: Coronary artery stenosis
     Dosage: 20 MILLIGRAM, QD
     Route: 048
  2. ASPIRIN [Suspect]
     Active Substance: ASPIRIN
     Indication: Coronary artery stenosis
     Dosage: 100 MILLIGRAM, QD
     Route: 048
  3. CLOPIDOGREL [Suspect]
     Active Substance: CLOPIDOGREL BISULFATE
     Indication: Coronary artery stenosis
     Dosage: 75 MILLIGRAM, QD
     Route: 048
  4. SIROLIMUS [Suspect]
     Active Substance: SIROLIMUS
     Indication: Coronary artery stenosis
     Dosage: UNK
     Route: 022

REACTIONS (2)
  - Drug ineffective for unapproved indication [Unknown]
  - Off label use [Unknown]
